FAERS Safety Report 8582506-7 (Version None)
Quarter: 2012Q3

REPORT INFORMATION
  Report Type: 
  Country: None (occurrence: None)
  Receive Date: 20120809
  Receipt Date: 20120801
  Transmission Date: 20120928
  Serious: Yes (Other)
  Sender: FDA-Public Use
  Company Number: ZA-JNJFOC-20120803709

PATIENT
  Age: 70 Year
  Sex: Female

DRUGS (4)
  1. XARELTO [Suspect]
     Indication: THROMBOSIS PROPHYLAXIS
     Route: 048
     Dates: start: 20120725, end: 20120729
  2. ENOXAPARIN [Suspect]
     Dates: start: 20120730
  3. XARELTO [Suspect]
     Indication: KNEE ARTHROPLASTY
     Route: 048
     Dates: start: 20120725, end: 20120729
  4. ENOXAPARIN [Suspect]
     Indication: THROMBOSIS PROPHYLAXIS
     Dates: start: 20120724, end: 20120724

REACTIONS (1)
  - DEEP VEIN THROMBOSIS [None]
